FAERS Safety Report 18412402 (Version 1)
Quarter: 2020Q4

REPORT INFORMATION
  Report Type: Spontaneous
  Country: HU (occurrence: HU)
  Receive Date: 20201021
  Receipt Date: 20201021
  Transmission Date: 20210114
  Serious: Yes (Disabling)
  Sender: FDA-Public Use
  Company Number: HU-009507513-2010HUN005534

PATIENT
  Age: 68 Year
  Sex: Male

DRUGS (25)
  1. XANAX [Suspect]
     Active Substance: ALPRAZOLAM
     Indication: PREMEDICATION
     Dates: start: 20200117, end: 20200117
  2. KLION [METRONIDAZOLE] [Suspect]
     Active Substance: METRONIDAZOLE
     Dosage: UNK
     Dates: start: 20200117, end: 20200127
  3. CLAFORAN [Suspect]
     Active Substance: CEFOTAXIME SODIUM
     Dosage: 1 GRAM, ONCE
     Dates: start: 20200117, end: 20200117
  4. CONTROLOC [Suspect]
     Active Substance: PANTOPRAZOLE SODIUM
     Dosage: DF = UNKNOWN
     Dates: start: 20200117, end: 20200129
  5. ALGOPYRIN [METAMIZOLE SODIUM] [Suspect]
     Active Substance: METAMIZOLE SODIUM
     Dosage: UNK
     Dates: start: 20200120, end: 20200120
  6. NO SPA [Suspect]
     Active Substance: DROTAVERINE HYDROCHLORIDE
     Dates: start: 20200120, end: 20200120
  7. ESMERON [Suspect]
     Active Substance: ROCURONIUM BROMIDE
     Dates: start: 20200117, end: 20200117
  8. ACETAMINOPHEN. [Suspect]
     Active Substance: ACETAMINOPHEN
     Indication: PREMEDICATION
     Dates: start: 20200117, end: 20200117
  9. CONTROLOC [Suspect]
     Active Substance: PANTOPRAZOLE SODIUM
     Dosage: DF = UNKNOWN
     Dates: start: 20200128, end: 20200129
  10. TRAMADOL HYDROCHLORIDE. [Suspect]
     Active Substance: TRAMADOL HYDROCHLORIDE
     Dates: start: 20200120, end: 20200120
  11. BRIDION [Suspect]
     Active Substance: SUGAMMADEX
     Dates: start: 20200117, end: 20200117
  12. ONDANSETRON [Suspect]
     Active Substance: ONDANSETRON
     Dates: start: 20200117, end: 20200117
  13. KLION [METRONIDAZOLE] [Suspect]
     Active Substance: METRONIDAZOLE
     Dosage: 500 MILLIGRAM, ONCE
     Dates: start: 20200117, end: 20200117
  14. BUPIVACAINE. [Suspect]
     Active Substance: BUPIVACAINE
     Indication: EPIDURAL ANAESTHESIA
     Dates: start: 20200117, end: 20200117
  15. LIDOCAINE. [Suspect]
     Active Substance: LIDOCAINE
     Indication: EPIDURAL ANAESTHESIA
     Dates: start: 20200117, end: 20200117
  16. SUPRAX [Suspect]
     Active Substance: CEFIXIME
     Dates: start: 20200122, end: 20200127
  17. SUFENTANIL [Suspect]
     Active Substance: SUFENTANIL
     Dates: start: 20200117, end: 20200117
  18. FENTANYL. [Suspect]
     Active Substance: FENTANYL
     Indication: EPIDURAL ANAESTHESIA
     Dates: start: 20200117, end: 20200117
  19. FENTANYL. [Suspect]
     Active Substance: FENTANYL
     Dosage: 2 MILLILITER
     Dates: start: 20200117, end: 20200117
  20. PROPOFOL. [Suspect]
     Active Substance: PROPOFOL
     Dates: start: 20200117, end: 20200117
  21. CLEXANE (ENOXAPARIN SODIUM) [Suspect]
     Active Substance: ENOXAPARIN SODIUM
     Dates: start: 202001, end: 20200129
  22. CLAFORAN [Suspect]
     Active Substance: CEFOTAXIME SODIUM
     Dosage: 1 GRAM, Q12H
     Dates: start: 20200117, end: 20200121
  23. ALGOPYRIN [METAMIZOLE SODIUM] [Suspect]
     Active Substance: METAMIZOLE SODIUM
     Dosage: 2 GRAM, ONCE
     Dates: start: 20200117, end: 20200117
  24. FENTANYL. [Suspect]
     Active Substance: FENTANYL
     Dosage: 2 MILLILITER
     Dates: start: 20200119, end: 20200119
  25. EPINEPHRINE. [Suspect]
     Active Substance: EPINEPHRINE
     Indication: EPIDURAL ANAESTHESIA
     Dates: start: 20200117, end: 20200117

REACTIONS (1)
  - Deafness neurosensory [Not Recovered/Not Resolved]

NARRATIVE: CASE EVENT DATE: 20200124
